FAERS Safety Report 21416417 (Version 2)
Quarter: 2022Q4

REPORT INFORMATION
  Report Type: Spontaneous
  Country: GB (occurrence: GB)
  Receive Date: 20221006
  Receipt Date: 20221121
  Transmission Date: 20230113
  Serious: Yes (Disabling, Other)
  Sender: FDA-Public Use
  Company Number: None

PATIENT
  Age: 68 Year
  Sex: Male

DRUGS (7)
  1. ATORVASTATIN [Suspect]
     Active Substance: ATORVASTATIN
  2. ATORVASTATIN [Suspect]
     Active Substance: ATORVASTATIN
  3. ATORVASTATIN [Suspect]
     Active Substance: ATORVASTATIN
     Dosage: BEDTIME
  4. FINASTERIDE [Suspect]
     Active Substance: FINASTERIDE
  5. TAMSULOSIN [Suspect]
     Active Substance: TAMSULOSIN
  6. TICAGRELOR [Suspect]
     Active Substance: TICAGRELOR
  7. ASPIRIN [Concomitant]
     Active Substance: ASPIRIN
     Dosage: MORNING

REACTIONS (11)
  - Condition aggravated [Unknown]
  - Movement disorder [Unknown]
  - Skin tightness [Unknown]
  - Abnormal weight gain [Unknown]
  - Depression [Unknown]
  - Pruritus [Unknown]
  - Muscular weakness [Unknown]
  - Fatigue [Unknown]
  - Peripheral swelling [Unknown]
  - Insomnia [Unknown]
  - Pain in extremity [Unknown]
